FAERS Safety Report 5532556-X (Version None)
Quarter: 2007Q4

REPORT INFORMATION
  Report Type: 
  Country: None (occurrence: None)
  Receive Date: 20071203
  Receipt Date: 20071127
  Transmission Date: 20080405
  Serious: Yes (Disabling)
  Sender: FDA-Public Use
  Company Number: US-BOEHRINGER INGELHEIM PHARMACEUTICALS, INC.-2007-BP-23346BP

PATIENT
  Age: 45 Year
  Sex: Female
  Weight: 64 kg

DRUGS (6)
  1. MIRAPEX [Suspect]
     Indication: RESTLESS LEGS SYNDROME
     Route: 048
     Dates: start: 20050301, end: 20071016
  2. MIRAPEX [Suspect]
     Route: 048
  3. CYMBALTA [Concomitant]
  4. SYNTHROID [Concomitant]
  5. TOPAMAX [Concomitant]
  6. PREVACID [Concomitant]

REACTIONS (2)
  - OBSESSIVE-COMPULSIVE DISORDER [None]
  - PATHOLOGICAL GAMBLING [None]
